FAERS Safety Report 4927925-2 (Version None)
Quarter: 2006Q1

REPORT INFORMATION
  Report Type: 
  Country: None (occurrence: None)
  Receive Date: 20060223
  Receipt Date: 20060217
  Transmission Date: 20060701
  Serious: Yes (Life-Threatening)
  Sender: FDA-Public Use
  Company Number: GBWYE404917FEB06

PATIENT
  Age: 41 Year
  Sex: Female

DRUGS (2)
  1. EFFEXOR [Suspect]
     Indication: DEPRESSION
     Dosage: 150MG ORAL
     Route: 048
     Dates: start: 20020924
  2. FERROUS SULPHATE (FERROUS SULFATE) [Concomitant]

REACTIONS (1)
  - BREAST CANCER FEMALE [None]
